FAERS Safety Report 4518875-4 (Version None)
Quarter: 2004Q4

REPORT INFORMATION
  Report Type: 
  Country: None (occurrence: None)
  Receive Date: 20041206
  Receipt Date: 20041125
  Transmission Date: 20050328
  Serious: Yes (Life-Threatening, Hospitalization)
  Sender: FDA-Public Use
  Company Number: FR-BRISTOL-MYERS SQUIBB COMPANY-12776456

PATIENT
  Age: 80 Year
  Sex: Female

DRUGS (2)
  1. COUMADIN [Suspect]
     Route: 048
  2. CALCIPARINE [Suspect]
     Route: 058

REACTIONS (2)
  - GASTROINTESTINAL HAEMORRHAGE [None]
  - ULCER [None]
